FAERS Safety Report 20345431 (Version 2)
Quarter: 2022Q1

REPORT INFORMATION
  Report Type: Spontaneous
  Country: IT (occurrence: IT)
  Receive Date: 20220118
  Receipt Date: 20220315
  Transmission Date: 20220423
  Serious: Yes (Other)
  Sender: FDA-Public Use
  Company Number: IT-SANOFI-00921763

PATIENT
  Age: 87 Year
  Sex: Female

DRUGS (1)
  1. PLAVIX [Suspect]
     Active Substance: CLOPIDOGREL BISULFATE
     Dosage: 75 MG, QOD

REACTIONS (8)
  - Deafness [Unknown]
  - Pain [Unknown]
  - Eye swelling [Unknown]
  - Dysphagia [Unknown]
  - Blister [Unknown]
  - Hypersensitivity [Unknown]
  - Unevaluable event [Unknown]
  - Therapy interrupted [Unknown]
